FAERS Safety Report 10029687 (Version 1)
Quarter: 2014Q1

REPORT INFORMATION
  Report Type: Spontaneous
  Country: US (occurrence: None)
  Receive Date: 20140321
  Receipt Date: 20140321
  Transmission Date: 20141002
  Serious: Yes (Other)
  Sender: FDA-Public Use
  Company Number: None

PATIENT
  Age: 92 Year
  Sex: Male
  Weight: 74.84 kg

DRUGS (1)
  1. BRIMONIDINE [Suspect]
     Indication: GLAUCOMA
     Dosage: 1 DROP TWICE DAILY INTO EYE
     Dates: start: 20131001, end: 20131201

REACTIONS (6)
  - Product substitution issue [None]
  - Fatigue [None]
  - Somnolence [None]
  - Dry mouth [None]
  - Malaise [None]
  - Activities of daily living impaired [None]
